FAERS Safety Report 21310783 (Version 1)
Quarter: 2022Q3

REPORT INFORMATION
  Report Type: Spontaneous
  Country: GB (occurrence: GB)
  Receive Date: 20220909
  Receipt Date: 20220909
  Transmission Date: 20221027
  Serious: Yes (Disabling, Other)
  Sender: FDA-Public Use
  Company Number: GB-UCBSA-2022052492

PATIENT

DRUGS (1)
  1. KEPPRA [Suspect]
     Active Substance: LEVETIRACETAM
     Indication: Partial seizures
     Dosage: UNK

REACTIONS (8)
  - Intellectual disability [Unknown]
  - Abnormal behaviour [Unknown]
  - Aggression [Unknown]
  - Irritability [Unknown]
  - Depressed mood [Unknown]
  - Cognitive disorder [Unknown]
  - Fatigue [Unknown]
  - Headache [Unknown]
